FAERS Safety Report 7570969-5 (Version None)
Quarter: 2011Q2

REPORT INFORMATION
  Report Type: 
  Country: None (occurrence: None)
  Receive Date: 20110622
  Receipt Date: 20110622
  Transmission Date: 20111010
  Serious: Yes (Disabling, Other)
  Sender: FDA-Public Use
  Company Number: None

PATIENT
  Sex: Male
  Weight: 106.5953 kg

DRUGS (2)
  1. NAVANE [Suspect]
     Dates: start: 19820101, end: 19980101
  2. RISPERDAL [Suspect]
     Indication: ANXIETY
     Dosage: 1 MG 3X DAY ORAL
     Route: 048
     Dates: start: 19980101, end: 20110101

REACTIONS (3)
  - WEIGHT INCREASED [None]
  - GYNAECOMASTIA [None]
  - BLOOD GLUCOSE INCREASED [None]
